FAERS Safety Report 12445769 (Version 1)
Quarter: 2016Q2

REPORT INFORMATION
  Report Type: Spontaneous
  Country: US (occurrence: US)
  Receive Date: 20160608
  Receipt Date: 20160608
  Transmission Date: 20160815
  Serious: No
  Sender: FDA-Public Use
  Company Number: US-JNJFOC-20160510331

PATIENT
  Age: 10 Year
  Sex: Male
  Weight: 34 kg

DRUGS (1)
  1. TYLENOL EXTRA STRENGTH [Suspect]
     Active Substance: ACETAMINOPHEN
     Indication: SKIN PAPILLOMA
     Route: 048
     Dates: start: 20160509, end: 20160509

REACTIONS (3)
  - Product use issue [Unknown]
  - Product selection error [Unknown]
  - Off label use [Unknown]
